FAERS Safety Report 5709356-0 (Version None)
Quarter: 2008Q2

REPORT INFORMATION
  Report Type: 
  Country: None (occurrence: None)
  Receive Date: 20080418
  Receipt Date: 20080414
  Transmission Date: 20081010
  Serious: Yes (Hospitalization)
  Sender: FDA-Public Use
  Company Number: FR-BRISTOL-MYERS SQUIBB COMPANY-14151120

PATIENT
  Age: 86 Year
  Sex: Female

DRUGS (9)
  1. COAPROVEL TABS 150MG/12.5MG [Suspect]
     Indication: HYPERTENSION
     Dosage: IRBESARTAN+HYDROCHLOROTHIAZIDE 150MG + 12.5 MG.
     Dates: end: 20080215
  2. DISCOTRINE [Concomitant]
  3. IKOREL [Concomitant]
  4. SOTALOL HCL [Concomitant]
  5. KARDEGIC [Concomitant]
  6. MIXTARD HUMAN 70/30 [Concomitant]
  7. DI-ANTALVIC [Concomitant]
     Dates: start: 20080213, end: 20080214
  8. FORLAX [Concomitant]
  9. VASTAREL [Concomitant]

REACTIONS (5)
  - ABNORMAL BEHAVIOUR [None]
  - CONFUSIONAL STATE [None]
  - DISORIENTATION [None]
  - FALL [None]
  - HYPONATRAEMIA [None]
